FAERS Safety Report 5600774-8 (Version None)
Quarter: 2008Q1

REPORT INFORMATION
  Report Type: 
  Country: None (occurrence: None)
  Receive Date: 20080123
  Receipt Date: 20080111
  Transmission Date: 20080703
  Serious: Yes (Hospitalization)
  Sender: FDA-Public Use
  Company Number: US-PFIZER INC-2007094015

PATIENT
  Sex: Male
  Weight: 78 kg

DRUGS (6)
  1. SUTENT [Suspect]
     Indication: NON-SMALL CELL LUNG CANCER
     Route: 048
  2. ADVAIR DISKUS 100/50 [Concomitant]
     Route: 055
  3. DECADRON [Concomitant]
     Route: 048
     Dates: start: 20070901
  4. KEPPRA [Concomitant]
     Route: 048
     Dates: start: 20070901
  5. FAMOTIDINE [Concomitant]
     Route: 048
  6. ACETAMINOPHEN [Concomitant]
     Route: 048

REACTIONS (2)
  - LETHARGY [None]
  - SPEECH DISORDER [None]
